FAERS Safety Report 16334760 (Version 1)
Quarter: 2019Q2

REPORT INFORMATION
  Report Type: Spontaneous
  Country: CN (occurrence: CN)
  Receive Date: 20190520
  Receipt Date: 20190520
  Transmission Date: 20190711
  Serious: Yes (Hospitalization)
  Sender: FDA-Public Use
  Company Number: CN-009507513-1905CHN006116

PATIENT
  Sex: Male
  Weight: 38 kg

DRUGS (1)
  1. TIENAM [Suspect]
     Active Substance: CILASTATIN SODIUM\IMIPENEM
     Indication: LUNG INFECTION
     Dosage: UNK
     Dates: start: 20190426, end: 20190503

REACTIONS (5)
  - Ulcer [Unknown]
  - Angular cheilitis [Recovering/Resolving]
  - Agitation [Recovered/Resolved]
  - Dermatitis [Recovering/Resolving]
  - Disorganised speech [Recovered/Resolved]

NARRATIVE: CASE EVENT DATE: 20190428
